FAERS Safety Report 20392553 (Version 1)
Quarter: 2022Q1

REPORT INFORMATION
  Report Type: Spontaneous
  Country: US (occurrence: None)
  Receive Date: 20220128
  Receipt Date: 20220128
  Transmission Date: 20220424
  Serious: Yes (Hospitalization)
  Sender: FDA-Public Use
  Company Number: None

PATIENT
  Age: 60 Year
  Sex: Female
  Weight: 47 kg

DRUGS (1)
  1. DARATUMUMAB [Suspect]
     Active Substance: DARATUMUMAB
     Indication: Plasma cell leukaemia
     Dosage: FREQUENCY : ONCE;?
     Route: 041

REACTIONS (4)
  - Infusion related reaction [None]
  - Dyspnoea [None]
  - Tachycardia [None]
  - Hypoxia [None]

NARRATIVE: CASE EVENT DATE: 20220126
